FAERS Safety Report 6952032-7 (Version None)
Quarter: 2010Q3

REPORT INFORMATION
  Report Type: 
  Country: None (occurrence: None)
  Receive Date: 20100829
  Receipt Date: 20100423
  Transmission Date: 20110219
  Serious: No
  Sender: FDA-Public Use
  Company Number: US-ABBOTT-10P-163-0640592-00

PATIENT
  Sex: Male

DRUGS (2)
  1. NIASPAN [Suspect]
     Indication: BLOOD CHOLESTEROL INCREASED
     Dosage: 1000 MG NIGHTLY
     Route: 048
     Dates: start: 20100413
  2. NIASPAN [Suspect]
     Dosage: 500 MG
     Dates: start: 20100330, end: 20100412

REACTIONS (1)
  - DIZZINESS [None]
